FAERS Safety Report 4911930-6 (Version None)
Quarter: 2006Q1

REPORT INFORMATION
  Report Type: 
  Country: None (occurrence: None)
  Receive Date: 20060215
  Receipt Date: 20060202
  Transmission Date: 20060701
  Serious: Yes (Disabling, Other)
  Sender: FDA-Public Use
  Company Number: PHBS2006JP01982

PATIENT
  Age: 74 Year
  Sex: Male

DRUGS (1)
  1. VOLTAREN [Suspect]
     Dosage: 25 MG/DAY
     Route: 054
     Dates: start: 20041001, end: 20041001

REACTIONS (2)
  - ANAPHYLACTIC SHOCK [None]
  - PSYCHOMOTOR SKILLS IMPAIRED [None]
